FAERS Safety Report 8206295-0 (Version None)
Quarter: 2012Q1

REPORT INFORMATION
  Report Type: 
  Country: None (occurrence: None)
  Receive Date: 20120313
  Receipt Date: 20120228
  Transmission Date: 20120608
  Serious: Yes (Hospitalization, Other)
  Sender: FDA-Public Use
  Company Number: PHHY2012DE008378

PATIENT
  Weight: 98 kg

DRUGS (16)
  1. ANGIOTENSIN CONVERTING ENZYME BLOCKERS [Concomitant]
     Dates: end: 20100628
  2. AMLODIPINE [Concomitant]
     Dosage: 10 MG PER DAY
     Dates: start: 20081208, end: 20110616
  3. METOPROLOL SUCCINATE [Concomitant]
     Indication: HYPERTENSION
     Dosage: 47.5 MG, PER DAY
     Route: 048
     Dates: start: 20111205
  4. DIURETICS [Concomitant]
  5. ASPIRIN [Concomitant]
     Indication: ARTERIOSCLEROSIS
     Dosage: 100 MG, PER DAY
     Route: 048
     Dates: start: 20021008
  6. CALCIUM CHANNEL BLOCKERS [Concomitant]
     Dates: end: 20110616
  7. VASODILATORS USED IN CARDIAC DISEASES [Concomitant]
  8. RASILEZ HCT [Suspect]
     Indication: HYPERTENSION
     Dosage: 1 DF, PER DAY
     Route: 048
     Dates: start: 20081208, end: 20110616
  9. LANTUS [Concomitant]
     Indication: DIABETES MELLITUS
     Dosage: 30 IU, PER DAY
     Route: 058
     Dates: start: 20040705
  10. METFORMIN HCL [Concomitant]
     Indication: DIABETES MELLITUS
     Dosage: 1700 MG, PER DAY
     Route: 048
     Dates: start: 20021008
  11. ACTRAPID [Concomitant]
     Indication: DIABETES MELLITUS
     Dosage: 20 IU, PER DAY
     Route: 058
     Dates: start: 20111125
  12. PLATELET AGGREGATION INHIBITORS [Concomitant]
  13. STATINS [Concomitant]
  14. RAMIPRIL [Concomitant]
     Dosage: 10 MG,PER DAY
     Dates: end: 20100628
  15. EXFORGE HCT [Suspect]
     Indication: HYPERTENSION
     Dosage: 1 DF, PER DAY
     Route: 048
     Dates: start: 20110616
  16. NEPRESOL [Concomitant]
     Indication: HYPERTENSION
     Dosage: 75 MG, PER DAY
     Route: 048
     Dates: start: 20100121

REACTIONS (4)
  - HYPERTENSION [None]
  - ELECTROCARDIOGRAM QT PROLONGED [None]
  - ELECTROCARDIOGRAM QRS COMPLEX PROLONGED [None]
  - BLOOD TRIGLYCERIDES INCREASED [None]
